FAERS Safety Report 6237468-4 (Version None)
Quarter: 2009Q2

REPORT INFORMATION
  Report Type: 
  Country: None (occurrence: None)
  Receive Date: 20090619
  Receipt Date: 20090617
  Transmission Date: 20091009
  Serious: Yes (Death, Life-Threatening, Disabling, Other)
  Sender: FDA-Public Use
  Company Number: PHEH2009US04945

PATIENT
  Sex: Female

DRUGS (1)
  1. TEKTURNA HCT [Suspect]
     Indication: HYPERTENSION
     Dosage: 300/12.5 MG
     Dates: start: 20090310, end: 20090405

REACTIONS (2)
  - CHOLELITHIASIS [None]
  - PANCREATITIS HAEMORRHAGIC [None]
